FAERS Safety Report 7753100-2 (Version None)
Quarter: 2011Q3

REPORT INFORMATION
  Report Type: 
  Country: None (occurrence: None)
  Receive Date: 20110913
  Receipt Date: 20110830
  Transmission Date: 20111222
  Serious: Yes (Hospitalization)
  Sender: FDA-Public Use
  Company Number: 1000023502

PATIENT

DRUGS (7)
  1. PRAVASTATIN [Suspect]
     Dosage: 20, ORAL   SINCE LONG TIME -
     Route: 048
  2. TRIMETAZIDINE (TRIMETAZIDINE) [Suspect]
     Dosage: 20, ORAL  SINCE LONG TIME -
  3. ASPIRIN [Suspect]
     Dosage: 20, ORAL   SINCE LONG TIME -
     Route: 048
  4. NOVOMIX (BIPHASIC INSULIN ASPART) (BIPHASIC INSULIN ASPART) [Concomitant]
  5. NEBIVOLOL HCL [Suspect]
     Dosage: ORAL  SINCE LONG TIME -
     Route: 048
  6. FUROSEMIDE [Suspect]
     Dosage: 20, ORAL  SINCE LONG TIME -
     Route: 048
  7. NAFTIDROFURYL (NAFTIDROFURYL) [Suspect]
     Dosage: 200, ORAL   SINCE LONG TIME -
     Route: 048

REACTIONS (2)
  - OESOPHAGEAL RUPTURE [None]
  - OESOPHAGEAL ULCER [None]
